FAERS Safety Report 4495251-4 (Version None)
Quarter: 2004Q4

REPORT INFORMATION
  Report Type: 
  Country: None (occurrence: None)
  Receive Date: 20041108
  Receipt Date: 20040730
  Transmission Date: 20050328
  Serious: No
  Sender: FDA-Public Use
  Company Number: US-GLAXOSMITHKLINE-A0520389A

PATIENT
  Age: 65 Year
  Sex: Female

DRUGS (7)
  1. AVANDAMET [Suspect]
     Route: 048
  2. LIPITOR [Concomitant]
  3. ZYRTEC [Concomitant]
  4. LISINOPRIL [Concomitant]
     Route: 065
  5. GLAUCOMA EYE DROPS (UNSPECIFIED) [Concomitant]
     Route: 047
  6. NASACORT [Concomitant]
  7. ZETIA [Concomitant]

REACTIONS (1)
  - BLOOD GLUCOSE INCREASED [None]
